FAERS Safety Report 8936519 (Version 4)
Quarter: 2013Q3

REPORT INFORMATION
  Report Type: Report from Study
  Country: US (occurrence: US)
  Receive Date: 20121130
  Receipt Date: 20130807
  Transmission Date: 20140515
  Serious: Yes (Other)
  Sender: FDA-Public Use
  Company Number: US-ROCHE-1045639

PATIENT
  Sex: Female
  Weight: 80.36 kg

DRUGS (1)
  1. TRASTUZUMAB [Suspect]
     Indication: BREAST CANCER
     Route: 065
     Dates: end: 20120221

REACTIONS (7)
  - Abnormal labour [Unknown]
  - Gestational diabetes [Unknown]
  - Polyhydramnios [Recovered/Resolved]
  - Anxiety [Not Recovered/Not Resolved]
  - Anaemia [Unknown]
  - Muscle spasms [Unknown]
  - Exposure during pregnancy [Unknown]
